FAERS Safety Report 10743290 (Version 1)
Quarter: 2015Q1

REPORT INFORMATION
  Report Type: Report from Study
  Country: BR (occurrence: BR)
  Receive Date: 20150127
  Receipt Date: 20150127
  Transmission Date: 20150721
  Serious: No
  Sender: FDA-Public Use
  Company Number: PHHY2015BR009151

PATIENT
  Sex: Female
  Weight: 64 kg

DRUGS (1)
  1. EXELON PATCH [Suspect]
     Active Substance: RIVASTIGMINE
     Indication: MEMORY IMPAIRMENT
     Dosage: 4.6 MG, QD (5CM2)
     Route: 062

REACTIONS (8)
  - Headache [Recovering/Resolving]
  - Product use issue [Unknown]
  - Mouth injury [Recovering/Resolving]
  - Fall [Recovering/Resolving]
  - Malaise [Recovering/Resolving]
  - Wound [Recovering/Resolving]
  - Head injury [Recovering/Resolving]
  - Mouth haemorrhage [Recovering/Resolving]

NARRATIVE: CASE EVENT DATE: 20150120
